FAERS Safety Report 9745986 (Version 1)
Quarter: 2013Q4

REPORT INFORMATION
  Report Type: Spontaneous
  Country: US (occurrence: None)
  Receive Date: 20131206
  Receipt Date: 20131206
  Transmission Date: 20140711
  Serious: Yes (Other)
  Sender: FDA-Public Use
  Company Number: None

PATIENT
  Age: 63 Year
  Sex: Male
  Weight: 100 kg

DRUGS (3)
  1. HYDRALAZINE [Suspect]
     Indication: HYPERTENSION
     Dosage: 10 MG PRN/AS NEEDED INTRAVENOUS
     Route: 042
     Dates: start: 20131202, end: 20131202
  2. METOPROLOL SUCCINATE [Concomitant]
  3. NITROGLYCERIN [Concomitant]

REACTIONS (4)
  - Pruritus [None]
  - Erythema [None]
  - Blood pressure increased [None]
  - Heart rate increased [None]
